FAERS Safety Report 7023340-9 (Version None)
Quarter: 2010Q3

REPORT INFORMATION
  Report Type: 
  Country: None (occurrence: None)
  Receive Date: 20100930
  Receipt Date: 20100622
  Transmission Date: 20110219
  Serious: Yes (Death, Hospitalization)
  Sender: FDA-Public Use
  Company Number: US-BAXTER-2010BH023822

PATIENT
  Age: 47 Year
  Sex: Male

DRUGS (31)
  1. HEPARIN SODIUM INJECTION [Suspect]
     Indication: HAEMODIALYSIS
     Route: 058
     Dates: start: 20070521, end: 20070521
  2. HEPARIN SODIUM INJECTION [Suspect]
     Route: 058
     Dates: start: 20070523, end: 20070523
  3. HEPARIN SODIUM INJECTION [Suspect]
     Route: 058
     Dates: start: 20070528, end: 20070528
  4. HEPARIN SODIUM INJECTION [Suspect]
     Route: 058
     Dates: start: 20070530, end: 20070530
  5. HEPARIN SODIUM INJECTION [Suspect]
     Route: 058
     Dates: start: 20070601, end: 20070601
  6. HEPARIN SODIUM INJECTION [Suspect]
     Route: 058
     Dates: start: 20070604, end: 20070604
  7. HEPARIN SODIUM INJECTION [Suspect]
     Route: 058
     Dates: start: 20070606, end: 20070606
  8. HEPARIN SODIUM INJECTION [Suspect]
     Route: 058
     Dates: start: 20070608, end: 20070608
  9. HEPARIN SODIUM INJECTION [Suspect]
     Route: 058
     Dates: start: 20070611, end: 20070611
  10. HEPARIN SODIUM INJECTION [Suspect]
     Route: 058
     Dates: start: 20070613, end: 20070613
  11. HEPARIN SODIUM INJECTION [Suspect]
     Route: 058
     Dates: start: 20070615, end: 20070615
  12. HEPARIN SODIUM INJECTION [Suspect]
     Route: 058
     Dates: start: 20070618, end: 20070618
  13. HEPARIN SODIUM INJECTION [Suspect]
     Route: 058
     Dates: start: 20070620, end: 20070620
  14. ASPIRIN [Concomitant]
     Indication: PRODUCT USED FOR UNKNOWN INDICATION
     Route: 065
  15. AZITHROMYCIN [Concomitant]
     Indication: PRODUCT USED FOR UNKNOWN INDICATION
     Route: 065
  16. CALCIUM CARBONATE [Concomitant]
     Indication: PRODUCT USED FOR UNKNOWN INDICATION
     Route: 065
  17. CAPSAICIN [Concomitant]
     Indication: PRODUCT USED FOR UNKNOWN INDICATION
     Route: 065
  18. CIPROFLOXACIN [Concomitant]
     Indication: PRODUCT USED FOR UNKNOWN INDICATION
     Route: 065
  19. COLCHICINE [Concomitant]
     Indication: PRODUCT USED FOR UNKNOWN INDICATION
     Route: 065
  20. FELODIPINE [Concomitant]
     Indication: PRODUCT USED FOR UNKNOWN INDICATION
     Route: 065
  21. FLUCONAZOLE [Concomitant]
     Indication: PRODUCT USED FOR UNKNOWN INDICATION
     Route: 065
  22. GLYBURIDE [Concomitant]
     Indication: PRODUCT USED FOR UNKNOWN INDICATION
     Route: 065
  23. LEVALBUTEROL HYDROCHLORIDE [Concomitant]
     Indication: PRODUCT USED FOR UNKNOWN INDICATION
     Route: 055
  24. LISINOPRIL [Concomitant]
     Indication: PRODUCT USED FOR UNKNOWN INDICATION
     Route: 065
  25. LOPERAMIDE [Concomitant]
     Indication: PRODUCT USED FOR UNKNOWN INDICATION
     Route: 065
  26. METOPROLOL TARTRATE [Concomitant]
     Indication: PRODUCT USED FOR UNKNOWN INDICATION
     Route: 065
  27. PYRIDOXIN [Concomitant]
     Indication: PRODUCT USED FOR UNKNOWN INDICATION
     Route: 065
  28. RIFABUTIN [Concomitant]
     Indication: PRODUCT USED FOR UNKNOWN INDICATION
     Route: 065
  29. OXYCODONE [Concomitant]
     Indication: PRODUCT USED FOR UNKNOWN INDICATION
     Route: 065
  30. THIAMINE HYDROCHLORIDE [Concomitant]
     Indication: PRODUCT USED FOR UNKNOWN INDICATION
     Route: 065
  31. MULTI-VITAMINS [Concomitant]
     Indication: PRODUCT USED FOR UNKNOWN INDICATION
     Route: 065

REACTIONS (9)
  - ASTHENIA [None]
  - DYSPNOEA [None]
  - IMMUNOSUPPRESSION [None]
  - LUNG INFECTION [None]
  - MYCOBACTERIUM AVIUM COMPLEX INFECTION [None]
  - NAUSEA [None]
  - PNEUMOTHORAX [None]
  - PYREXIA [None]
  - RENAL TRANSPLANT [None]
